FAERS Safety Report 10433584 (Version 1)
Quarter: 2014Q3

REPORT INFORMATION
  Report Type: Spontaneous
  Country: BR (occurrence: BR)
  Receive Date: 20140905
  Receipt Date: 20140905
  Transmission Date: 20150326
  Serious: Yes (Other)
  Sender: FDA-Public Use
  Company Number: BR-009507513-1409BRA000467

PATIENT
  Age: 32 Year
  Sex: Female
  Weight: 68 kg

DRUGS (2)
  1. NUVARING [Suspect]
     Active Substance: ETHINYL ESTRADIOL\ETONOGESTREL
     Indication: CONTRACEPTION
     Dosage: UNK, 3 WEEKS OF USAGE AND 1 WEEK OF INTERVAL
     Route: 067
     Dates: start: 2005
  2. CIPROFLOXACIN. [Concomitant]
     Active Substance: CIPROFLOXACIN
     Indication: PRODUCT USED FOR UNKNOWN INDICATION
     Dosage: UNK, UNKNOWN
     Dates: start: 2012, end: 2012

REACTIONS (7)
  - Asthma [Not Recovered/Not Resolved]
  - Intussusception [Recovered/Resolved]
  - Abdominal adhesions [Recovered/Resolved]
  - Laparoscopy [Recovered/Resolved]
  - Small intestinal intussusception reduction [Recovered/Resolved]
  - Drug hypersensitivity [Recovered/Resolved]
  - Incorrect drug administration duration [Unknown]

NARRATIVE: CASE EVENT DATE: 2010
